FAERS Safety Report 5405080-2 (Version None)
Quarter: 2007Q3

REPORT INFORMATION
  Report Type: 
  Country: None (occurrence: None)
  Receive Date: 20070803
  Receipt Date: 20070725
  Transmission Date: 20080115
  Serious: Yes (Disabling, Other)
  Sender: FDA-Public Use
  Company Number: FR-ROCHE-489574

PATIENT
  Age: 26 Year
  Sex: Female
  Weight: 56 kg

DRUGS (2)
  1. LARIAM [Suspect]
     Indication: MALARIA PROPHYLAXIS
     Dosage: FIRST INTAKE (ONE TABLET) ON 19 FEB 2007, SECOND INTAKE (ONE TABLETS) ON 02 MAR 2007.
     Route: 048
     Dates: start: 20070219, end: 20070302
  2. ETHINYL ESTRADIOL AND LEVONORGESTREL [Concomitant]
     Dosage: DOSAGE REGIMEN REPORTED AS 1 DOSE ONCE A DAY.

REACTIONS (14)
  - AMNESIA [None]
  - ANXIETY [None]
  - ASTHENIA [None]
  - COGNITIVE DISORDER [None]
  - DISTURBANCE IN ATTENTION [None]
  - DYSPNOEA [None]
  - HALLUCINATION [None]
  - HEARING IMPAIRED [None]
  - MUSCLE SPASMS [None]
  - NAUSEA [None]
  - NIGHTMARE [None]
  - PALPITATIONS [None]
  - TREMOR [None]
  - VERTIGO [None]
